FAERS Safety Report 16204881 (Version 2)
Quarter: 2019Q2

REPORT INFORMATION
  Report Type: Spontaneous
  Country: US (occurrence: US)
  Receive Date: 20190416
  Receipt Date: 20190426
  Transmission Date: 20190711
  Serious: No
  Sender: FDA-Public Use
  Company Number: US-MATRIXX INITIATIVES, INC.-2065927

PATIENT
  Age: 52 Year
  Sex: Female

DRUGS (2)
  1. UNDISCLOSED ADDITIONAL MEDICATIONS [Concomitant]
  2. ZICAM COLD REMEDY NASAL SWABS (HOMEOPATHICS) [Suspect]
     Active Substance: HOMEOPATHICS\ZINC ACETATE\ZINC GLUCONATE
     Indication: NASOPHARYNGITIS
     Route: 045
     Dates: start: 20190327, end: 20190329

REACTIONS (2)
  - Anosmia [Not Recovered/Not Resolved]
  - Ageusia [Recovering/Resolving]
